FAERS Safety Report 8395951-X (Version None)
Quarter: 2012Q2

REPORT INFORMATION
  Report Type: 
  Country: None (occurrence: None)
  Receive Date: 20120530
  Receipt Date: 20120522
  Transmission Date: 20120825
  Serious: Yes (Hospitalization)
  Sender: FDA-Public Use
  Company Number: US-ROCHE-1072404

PATIENT
  Sex: Male

DRUGS (22)
  1. LEVEMIR [Concomitant]
     Route: 058
  2. HUMALOG [Concomitant]
  3. CARVEDILOL [Concomitant]
     Dosage: 25 MG 1 AND 1/2
     Route: 048
  4. TIKOSYN [Concomitant]
  5. COUMADIN [Concomitant]
     Dosage: 2.5 MG 1/2 TAB
     Route: 048
  6. NIASPAN [Concomitant]
     Dosage: 1000 MG 1 CAP HS.
     Route: 048
  7. XANAX [Concomitant]
  8. GABAPENTIN [Concomitant]
     Route: 048
  9. BUMEX [Concomitant]
     Dosage: 1 TAB ORAL BID AND 1 PM ISH
     Route: 048
  10. MULTI-VITAMINS [Concomitant]
     Dosage: 1 TAB DAILY
     Route: 048
  11. VALIUM [Suspect]
     Indication: PRODUCT USED FOR UNKNOWN INDICATION
  12. SIMVASTATIN [Concomitant]
     Dosage: 40 MG HS
     Route: 048
  13. VITAMIN E [Concomitant]
     Route: 048
  14. ADVAIR DISKUS 100/50 [Concomitant]
     Dosage: 500/50 PUFF
  15. BIPAP [Concomitant]
  16. IBUPROPHENUM [Concomitant]
     Dosage: 2 TO 4 TAB PRN
     Route: 048
  17. LOSARTAN POTASSIUM [Concomitant]
     Route: 048
  18. WARFARIN SODIUM [Concomitant]
     Dosage: 2 MG 1 TAB ORAL MT
     Route: 048
  19. OXYGEN [Concomitant]
     Dosage: 2L NASAL CANULA PRN
  20. AMBIEN CR [Concomitant]
     Dosage: 6.25 MG QHS
  21. POTASSIUM CHLORIDE [Concomitant]
     Dosage: 2 TAB BID
  22. VITAMIN D [Concomitant]
     Route: 048

REACTIONS (11)
  - SLEEP DISORDER [None]
  - LETHARGY [None]
  - ANXIETY [None]
  - PAIN [None]
  - VOMITING [None]
  - PRURITUS [None]
  - CARDIAC FAILURE CHRONIC [None]
  - NAUSEA [None]
  - RASH [None]
  - BLOOD PRESSURE DECREASED [None]
  - HEADACHE [None]
